FAERS Safety Report 9028299 (Version 2)
Quarter: 2013Q1

REPORT INFORMATION
  Report Type: Spontaneous
  Country: US (occurrence: US)
  Receive Date: 20130124
  Receipt Date: 20130311
  Transmission Date: 20140127
  Serious: Yes (Other)
  Sender: FDA-Public Use
  Company Number: US-PFIZER INC-2013030033

PATIENT
  Age: 54 Year
  Sex: Female

DRUGS (5)
  1. ZIPRASIDONE HCL [Suspect]
     Dosage: (20 MG IN THE MORNING AND 40 MG AT NIGHT),2X/DAY
     Route: 048
     Dates: start: 201209
  2. LAMICTAL [Concomitant]
     Indication: CONVULSION
     Dosage: 150 MG, DAILY
  3. LAMICTAL [Concomitant]
     Indication: AFFECTIVE DISORDER
  4. ALPRAZOLAM [Concomitant]
     Indication: ANXIETY
     Dosage: 0.5 MG, 2X/DAY
  5. BACLOFEN [Concomitant]
     Indication: MUSCLE RELAXANT THERAPY
     Dosage: 10 MG, 3X/DAY

REACTIONS (1)
  - Dysphagia [Not Recovered/Not Resolved]
